FAERS Safety Report 4522958-2 (Version None)
Quarter: 2004Q4

REPORT INFORMATION
  Report Type: 
  Country: None (occurrence: None)
  Receive Date: 20041101
  Receipt Date: 20040305
  Transmission Date: 20050328
  Serious: Yes (Other)
  Sender: FDA-Public Use
  Company Number: HQWYE633308MAR04

PATIENT
  Age: 82 Year
  Sex: Female
  Weight: 63.56 kg

DRUGS (3)
  1. PREMARIN [Suspect]
     Indication: HORMONE REPLACEMENT THERAPY
     Dosage: 0.625M TABLET DAILY, ORAL
     Route: 048
     Dates: start: 19510101, end: 20040227
  2. UNSPECIFIED VITAMINS (UNSPECIFIED VITAMINS) [Concomitant]
  3. UNSPECIFIED CALCIUM SUPPLEMENT (UNSPECIFIED CALCIUM SUPPLEMENT) [Concomitant]

REACTIONS (3)
  - BREAST CANCER [None]
  - CYSTITIS [None]
  - INSOMNIA [None]
